FAERS Safety Report 6618524-5 (Version None)
Quarter: 2010Q1

REPORT INFORMATION
  Report Type: 
  Country: None (occurrence: None)
  Receive Date: 20100308
  Receipt Date: 20100304
  Transmission Date: 20100710
  Serious: Yes (Hospitalization, Other)
  Sender: FDA-Public Use
  Company Number: US-TEVA-223891USA

PATIENT
  Age: 61 Year
  Sex: Male

DRUGS (9)
  1. ATROPINE SULFATE, INJECTION, 0.4 MG/ML,  IN 1ML OR 20ML VOL [Suspect]
     Indication: SMOKING CESSATION THERAPY
     Route: 030
  2. HYOSCINE [Suspect]
     Indication: SMOKING CESSATION THERAPY
     Route: 030
  3. TIOTROPIUM BROMIDE [Concomitant]
     Dosage: INHALED
  4. MONTELUKAST SODIUM [Concomitant]
  5. GALENIC /FLUTICASONE/SALMETEROL/ [Concomitant]
     Dosage: INHALED
  6. ATORVASTATIN CALCIUM [Concomitant]
  7. ACETYLSALICYLIC ACID [Concomitant]
  8. PAROXETINE HCL [Concomitant]
  9. SALBUTAMOL [Concomitant]

REACTIONS (1)
  - PSYCHOTIC DISORDER [None]
